FAERS Safety Report 18413451 (Version 2)
Quarter: 2020Q4

REPORT INFORMATION
  Report Type: Spontaneous
  Country: TR (occurrence: TR)
  Receive Date: 20201022
  Receipt Date: 20201027
  Transmission Date: 20210114
  Serious: Yes (Hospitalization)
  Sender: FDA-Public Use
  Company Number: TR-CELLTRION INC.-2020TR029407

PATIENT

DRUGS (13)
  1. IDARUBICIN [Suspect]
     Active Substance: IDARUBICIN
     Indication: DIFFUSE LARGE B-CELL LYMPHOMA
     Dosage: 2 CYCLES OF R-IDARAM REGIMEN
  2. CYCLOPHOSPHAMIDE. [Suspect]
     Active Substance: CYCLOPHOSPHAMIDE
     Indication: DIFFUSE LARGE B-CELL LYMPHOMA
     Dosage: 6 COURSE OF R-CHOP REGIMEN
  3. ETOPOSIDE. [Suspect]
     Active Substance: ETOPOSIDE
  4. CYCLOPHOSPHAMIDE. [Suspect]
     Active Substance: CYCLOPHOSPHAMIDE
  5. CYTARABINE. [Suspect]
     Active Substance: CYTARABINE
  6. DOXORUBICIN [Suspect]
     Active Substance: DOXORUBICIN
     Indication: DIFFUSE LARGE B-CELL LYMPHOMA
     Dosage: 6 COURSE OF R-CHOP REGIMEN
  7. METHOTREXATE. [Suspect]
     Active Substance: METHOTREXATE
     Indication: DIFFUSE LARGE B-CELL LYMPHOMA
     Dosage: 2 CYCLES OF R-IDARAM REGIMEN; 2 COURSE OF HYPER-CVAD
  8. VINCRISTINE [Suspect]
     Active Substance: VINCRISTINE
     Indication: DIFFUSE LARGE B-CELL LYMPHOMA
     Dosage: 6 COURSE OF R-CHOP REGIMEN
  9. PREDNISOLONE. [Suspect]
     Active Substance: PREDNISOLONE
     Indication: DIFFUSE LARGE B-CELL LYMPHOMA
     Dosage: 6 COURSE OF R-CHOP REGIMEN
  10. CYTARABINE. [Suspect]
     Active Substance: CYTARABINE
     Indication: DIFFUSE LARGE B-CELL LYMPHOMA
     Dosage: 2 CYCLES OF R-IDARAM REGIMEN; 2 COURSE OF HYPER-CVAD
  11. RITUXIMAB (UNKNOWN) [Suspect]
     Active Substance: RITUXIMAB
     Indication: DIFFUSE LARGE B-CELL LYMPHOMA
     Dosage: 6 COURSE OF R-CHOP REGIMEN; 2 CYCLES OF R-IDARAM REGIMEN; 2 COURSE OF HYPER-CVAD
  12. THIOTEPA. [Suspect]
     Active Substance: THIOTEPA
  13. MELPHALAN. [Suspect]
     Active Substance: MELPHALAN

REACTIONS (3)
  - Therapeutic product effect decreased [Unknown]
  - Cranial nerve disorder [Unknown]
  - Therapeutic product effect incomplete [Unknown]
